FAERS Safety Report 9648521 (Version 1)
Quarter: 2013Q4

REPORT INFORMATION
  Report Type: Spontaneous
  Country: JP (occurrence: JP)
  Receive Date: 20131028
  Receipt Date: 20131028
  Transmission Date: 20140711
  Serious: Yes (Other)
  Sender: FDA-Public Use
  Company Number: JP-SA-2013SA106935

PATIENT
  Age: 52 Year
  Sex: Male

DRUGS (2)
  1. DOCETAXEL [Suspect]
     Indication: PROSTATE CANCER
     Dosage: 1-29 TREATMENT COURSES
     Route: 065
  2. DOCETAXEL [Suspect]
     Indication: PROSTATE CANCER
     Dosage: 30 TREATMENT COURSES
     Route: 065

REACTIONS (3)
  - Cystoid macular oedema [Recovering/Resolving]
  - Photophobia [Unknown]
  - Lacrimation increased [Unknown]
